FAERS Safety Report 8122064-4 (Version None)
Quarter: 2012Q1

REPORT INFORMATION
  Report Type: 
  Country: None (occurrence: None)
  Receive Date: 20120208
  Receipt Date: 20120131
  Transmission Date: 20120608
  Serious: Yes (Other)
  Sender: FDA-Public Use
  Company Number: US-JNJFOC-20111201916

PATIENT
  Sex: Female

DRUGS (4)
  1. ACIPHEX [Concomitant]
     Route: 065
  2. REMICADE [Suspect]
     Indication: ANKYLOSING SPONDYLITIS
     Route: 042
     Dates: start: 20110101, end: 20111130
  3. SULFASALAZINE [Concomitant]
     Route: 065
  4. ZYRTEC [Concomitant]
     Dosage: HS
     Route: 065

REACTIONS (8)
  - INFUSION RELATED REACTION [None]
  - ERYTHEMA [None]
  - CONFUSIONAL STATE [None]
  - SWELLING FACE [None]
  - TACHYCARDIA [None]
  - CHEST DISCOMFORT [None]
  - URTICARIA [None]
  - OXYGEN SATURATION DECREASED [None]
